FAERS Safety Report 5382266-7 (Version None)
Quarter: 2007Q3

REPORT INFORMATION
  Report Type: 
  Country: None (occurrence: None)
  Receive Date: 20070709
  Receipt Date: 20070628
  Transmission Date: 20080115
  Serious: Yes (Death, Life-Threatening, Hospitalization)
  Sender: FDA-Public Use
  Company Number: FR-PFIZER INC-2007048495

PATIENT
  Age: 74 Year
  Sex: Male

DRUGS (5)
  1. CIPROFLOXACIN [Suspect]
     Indication: RESPIRATORY TRACT INFECTION
     Dosage: DAILY DOSE:1GRAM
     Route: 048
     Dates: start: 20070323, end: 20070329
  2. PREVISCAN [Suspect]
     Dosage: DAILY DOSE:10MG
     Route: 048
  3. LASIX [Suspect]
     Indication: HYPERTENSION
     Dosage: DAILY DOSE:80MG
     Route: 048
  4. ROCEPHIN [Suspect]
     Indication: RESPIRATORY TRACT INFECTION
     Dosage: DAILY DOSE:2GRAM
     Route: 042
     Dates: start: 20070323, end: 20070329
  5. SOLU-MEDROL [Suspect]
     Dosage: DAILY DOSE:120MG
     Route: 042
     Dates: start: 20070323, end: 20070329

REACTIONS (3)
  - CEREBRAL HAEMORRHAGE [None]
  - INTERNATIONAL NORMALISED RATIO INCREASED [None]
  - RESPIRATORY FAILURE [None]
